FAERS Safety Report 4758130-0 (Version None)
Quarter: 2005Q3

REPORT INFORMATION
  Report Type: 
  Country: None (occurrence: None)
  Receive Date: 20050829
  Receipt Date: 20050816
  Transmission Date: 20060218
  Serious: Yes (Other)
  Sender: FDA-Public Use
  Company Number: 430013M05DEU

PATIENT
  Age: 25 Year
  Sex: Male

DRUGS (1)
  1. RALENOVA (MITOXANTRONE HYDROCHLORIDE) [Suspect]
     Indication: MULTIPLE SCLEROSIS

REACTIONS (2)
  - CARDIOMYOPATHY [None]
  - EJECTION FRACTION DECREASED [None]
